FAERS Safety Report 8218828-9 (Version None)
Quarter: 2012Q1

REPORT INFORMATION
  Report Type: 
  Country: None (occurrence: None)
  Receive Date: 20120319
  Receipt Date: 20120314
  Transmission Date: 20120608
  Serious: Yes (Death, Hospitalization)
  Sender: FDA-Public Use
  Company Number: PHHY2012NI022941

PATIENT
  Age: 87 Year
  Sex: Female

DRUGS (3)
  1. DIOVAN [Suspect]
     Indication: HYPERTENSION
     Dosage: 80 MG, PER DAY
     Route: 048
  2. CRESTOR [Concomitant]
     Dosage: 20 MG, PER DAY
     Route: 048
  3. SOMAZINA [Concomitant]
     Dosage: 1 DF, PER DAY
     Route: 048

REACTIONS (5)
  - BLOOD POTASSIUM DECREASED [None]
  - DEATH [None]
  - BLOOD SODIUM DECREASED [None]
  - MYOCARDIAL INFARCTION [None]
  - DISORIENTATION [None]
